FAERS Safety Report 19699824 (Version 3)
Quarter: 2022Q3

REPORT INFORMATION
  Report Type: Other
  Country: BR (occurrence: None)
  Receive Date: 20210814
  Receipt Date: 20220920
  Transmission Date: 20221027
  Serious: No
  Sender: FDA-Public Use
  Company Number: BR-ROCHE-2885892

PATIENT
  Age: 28 Year
  Sex: Male

DRUGS (11)
  1. OCRELIZUMAB [Suspect]
     Active Substance: OCRELIZUMAB
     Indication: Primary progressive multiple sclerosis
     Route: 042
     Dates: start: 20201023
  2. OCRELIZUMAB [Suspect]
     Active Substance: OCRELIZUMAB
     Indication: Relapsing-remitting multiple sclerosis
  3. TENOXICAM [Concomitant]
     Active Substance: TENOXICAM
     Route: 042
     Dates: start: 20210329, end: 20210329
  4. BACLOFEN [Concomitant]
     Active Substance: BACLOFEN
     Route: 048
     Dates: start: 20181001
  5. PAROXETINE [Concomitant]
     Active Substance: PAROXETINE
     Route: 048
     Dates: start: 20181001
  6. CARBAMAZEPINE [Concomitant]
     Active Substance: CARBAMAZEPINE
     Route: 048
     Dates: start: 20191201
  7. CLORETO DE SODIO [Concomitant]
     Route: 042
     Dates: start: 20210329, end: 20210329
  8. ALBUTEROL [Concomitant]
     Active Substance: ALBUTEROL
     Route: 042
     Dates: start: 20210329, end: 20210330
  9. AMINOPHYLLINE [Concomitant]
     Active Substance: AMINOPHYLLINE
     Route: 042
     Dates: start: 20210329, end: 20210329
  10. DIPIRONA SODICA [Concomitant]
     Route: 042
     Dates: start: 20210329, end: 20210329
  11. HYDROCORTISONE [Concomitant]
     Active Substance: HYDROCORTISONE
     Route: 042
     Dates: start: 20210329, end: 20210329

REACTIONS (1)
  - COVID-19 [Recovered/Resolved]

NARRATIVE: CASE EVENT DATE: 20210401
